FAERS Safety Report 20851635 (Version 1)
Quarter: 2022Q2

REPORT INFORMATION
  Report Type: Spontaneous
  Country: US (occurrence: US)
  Receive Date: 20220520
  Receipt Date: 20220520
  Transmission Date: 20220721
  Serious: No
  Sender: FDA-Public Use
  Company Number: US-BRISTOL-MYERS SQUIBB COMPANY-2022-018323

PATIENT
  Age: 28 Year
  Sex: Female

DRUGS (3)
  1. THALOMID [Suspect]
     Active Substance: THALIDOMIDE
     Indication: Crohn^s disease
     Route: 048
     Dates: start: 20220405
  2. ONDANSETRON [Concomitant]
     Active Substance: ONDANSETRON
     Indication: Product used for unknown indication
     Dosage: 4 MILLIGRAM, ODT
     Route: 065
  3. TUMS EXTRA CHW [Concomitant]
     Indication: Product used for unknown indication
     Route: 065

REACTIONS (1)
  - Intentional product use issue [Unknown]
